FAERS Safety Report 10162193 (Version 1)
Quarter: 2014Q2

REPORT INFORMATION
  Report Type: Spontaneous
  Country: DE (occurrence: None)
  Receive Date: 20140507
  Receipt Date: 20140507
  Transmission Date: 20141212
  Serious: Yes (Death, Hospitalization)
  Sender: FDA-Public Use
  Company Number: DAV-AE-MTX-14-13

PATIENT
  Age: 42 Year
  Sex: Female

DRUGS (5)
  1. METHOTREXATE [Suspect]
     Dosage: 7.5-15MG/1X/QWK, PO OR SC
     Route: 048
     Dates: start: 2009, end: 2012
  2. AZATHIOPRINE [Concomitant]
  3. CYCLOPHOSPHAMIDE [Concomitant]
  4. RITUXIMAB [Concomitant]
  5. IMMUNOGLOBULINS (IVIG) [Concomitant]

REACTIONS (15)
  - Epstein-Barr virus infection [None]
  - Diffuse large B-cell lymphoma [None]
  - Renal failure acute [None]
  - Acute hepatic failure [None]
  - Ascites [None]
  - Pancytopenia [None]
  - Gastrointestinal inflammation [None]
  - Coagulopathy [None]
  - Acute lung injury [None]
  - Hepatosplenomegaly [None]
  - Haemofiltration [None]
  - Multi-organ failure [None]
  - Hyperkalaemia [None]
  - Cardiac arrest [None]
  - Sialoadenitis [None]
